FAERS Safety Report 19846936 (Version 2)
Quarter: 2021Q3

REPORT INFORMATION
  Report Type: Report from Study
  Country: CO (occurrence: CO)
  Receive Date: 20210917
  Receipt Date: 20210923
  Transmission Date: 20211014
  Serious: Yes (Hospitalization, Other)
  Sender: FDA-Public Use
  Company Number: CO-BIOGEN-2021BI01045248

PATIENT
  Age: 54 Year
  Sex: Female
  Weight: 76 kg

DRUGS (4)
  1. AVONEX [Suspect]
     Active Substance: INTERFERON BETA-1A
  2. AVONEX [Suspect]
     Active Substance: INTERFERON BETA-1A
  3. AVONEX [Suspect]
     Active Substance: INTERFERON BETA-1A
     Indication: MULTIPLE SCLEROSIS
     Route: 030
     Dates: start: 2012
  4. AVONEX [Suspect]
     Active Substance: INTERFERON BETA-1A
     Route: 030
     Dates: start: 201507

REACTIONS (13)
  - Dizziness [Not Recovered/Not Resolved]
  - Asthenia [Unknown]
  - Drug ineffective [Unknown]
  - Headache [Not Recovered/Not Resolved]
  - Type 2 diabetes mellitus [Not Recovered/Not Resolved]
  - Pain [Not Recovered/Not Resolved]
  - Arthralgia [Unknown]
  - Suture related complication [Not Recovered/Not Resolved]
  - Hypoaesthesia [Not Recovered/Not Resolved]
  - Blood glucose increased [Unknown]
  - Syncope [Recovered/Resolved]
  - Hypokinesia [Not Recovered/Not Resolved]
  - Inflammation [Not Recovered/Not Resolved]

NARRATIVE: CASE EVENT DATE: 2020
